FAERS Safety Report 14339155 (Version 1)
Quarter: 2017Q4

REPORT INFORMATION
  Report Type: Spontaneous
  Country: CN (occurrence: CN)
  Receive Date: 20171230
  Receipt Date: 20171230
  Transmission Date: 20180321
  Serious: Yes (Life-Threatening, Other)
  Sender: FDA-Public Use
  Company Number: CN-ACCORD-062412

PATIENT
  Age: 68 Year
  Sex: Female

DRUGS (2)
  1. PIRARUBICIN [Suspect]
     Active Substance: PIRARUBICIN
     Indication: HEPATOCELLULAR CARCINOMA
  2. CISPLATIN. [Suspect]
     Active Substance: CISPLATIN
     Indication: HEPATOCELLULAR CARCINOMA

REACTIONS (2)
  - Bone marrow failure [Unknown]
  - Drug intolerance [Unknown]
